FAERS Safety Report 9133379 (Version 1)
Quarter: 2013Q1

REPORT INFORMATION
  Report Type: Report from Study
  Country: JP (occurrence: JP)
  Receive Date: 20130125
  Receipt Date: 20130125
  Transmission Date: 20140127
  Serious: Yes (Hospitalization, Other)
  Sender: FDA-Public Use
  Company Number: JP-009507513-2012SP021230

PATIENT
  Age: 66 Year
  Sex: Male
  Weight: 79 kg

DRUGS (53)
  1. PEGINTRON [Suspect]
     Indication: CHRONIC HEPATITIS C
     Dosage: 1.5MICROGRAM/KG , QW
     Route: 058
     Dates: start: 20120215, end: 20120323
  2. REBETOL [Suspect]
     Indication: CHRONIC HEPATITIS C
     Dosage: 800 MG, QD
     Route: 048
     Dates: start: 20120215, end: 20120221
  3. REBETOL [Suspect]
     Dosage: 400 MG, QD
     Route: 048
     Dates: start: 20120222, end: 20120228
  4. REBETOL [Suspect]
     Dosage: 200 MG, QD
     Route: 048
     Dates: start: 20120229, end: 20120325
  5. TELAVIC [Suspect]
     Indication: CHRONIC HEPATITIS C
     Dosage: 2250 MG, QD
     Route: 048
     Dates: start: 20120215, end: 20120221
  6. TELAVIC [Suspect]
     Dosage: 1500 MG, QD
     Route: 048
     Dates: start: 20120222, end: 20120325
  7. PANALDINE [Concomitant]
     Indication: RASH
     Dosage: PAST DRUG HISTORY
     Route: 065
  8. AMLODIN (AMLODIPINE BESYLATE) [Concomitant]
     Indication: HYPERTENSION
     Dosage: 2.5 MG, QD
     Route: 048
     Dates: end: 20120419
  9. AMLODIN (AMLODIPINE BESYLATE) [Concomitant]
     Dosage: 5 MG, QD
     Route: 048
     Dates: start: 20120502, end: 20120517
  10. BAYASPIRIN [Concomitant]
     Indication: MYOCARDIAL ISCHAEMIA
     Dosage: CUMULATIVE DOSE: 700MG UPDATE (31MAY2012)
     Route: 048
     Dates: start: 20120209, end: 20120419
  11. BAYASPIRIN [Concomitant]
     Dosage: 100 MG, QD
     Route: 048
     Dates: start: 20120425, end: 20120517
  12. PLAVIX [Concomitant]
     Indication: MYOCARDIAL ISCHAEMIA
     Dosage: CUMULATIVE DOSE: 450MG UPDATE (31MAY2012)
     Route: 048
     Dates: start: 20120209, end: 20120419
  13. PLAVIX [Concomitant]
     Dosage: 75 MG, QD
     Route: 048
     Dates: start: 20120425, end: 20120517
  14. MAINTATE [Concomitant]
     Indication: HYPERTENSION
     Dosage: CUMULATIVE DOSE: 30MG UPDATE (31MAY2012)
     Route: 048
     Dates: start: 20120209, end: 20120419
  15. MAINTATE [Concomitant]
     Dosage: 5 MG, QD
     Route: 048
     Dates: start: 20120425, end: 20120517
  16. EXFORGE [Concomitant]
     Indication: HYPERTENSION
     Dosage: CUMULATIVE DOSE: 6 DOSAGE FORM
     Route: 048
     Dates: start: 20120209, end: 20120222
  17. EXFORGE [Concomitant]
     Dosage: 1 DF, QD
     Route: 048
     Dates: start: 20120425, end: 20120515
  18. GASTER D [Concomitant]
     Indication: PROPHYLAXIS
     Dosage: CUMULATIVE DOSE: 120 MG UPDATE (31MAY2012)
     Route: 048
     Dates: start: 20120209, end: 20120419
  19. GASTER D [Concomitant]
     Dosage: 20 MG, QD
     Route: 048
     Dates: start: 20120425, end: 20120517
  20. GASMOTIN [Concomitant]
     Indication: PROPHYLAXIS
     Dosage: TOTAL DAILY DOSE: 15 MG UPDATE (31MAY2012)
     Route: 048
     Dates: start: 20120219, end: 20120419
  21. GASMOTIN [Concomitant]
     Dosage: 5 MG, TID
     Route: 048
     Dates: start: 20120425, end: 20120517
  22. BACILLUS PUMILUS (+) CLOSTRIDIUM BUTYRICUM (+) ENTEROCOCCUS FAECIUM [Concomitant]
     Dosage: TOTAL DAILY DOSE: 9 DOSAGE FORM (DF), CUMULATIVE DOSE: 18 DF
     Route: 048
     Dates: start: 20120210, end: 20120211
  23. PEGASYS [Concomitant]
     Dosage: DAILY DOSE UNKNOWN
     Route: 058
     Dates: start: 20120215, end: 20120215
  24. SENNOSIDES [Concomitant]
     Indication: CONSTIPATION
     Dosage: 12 MG, UNKNOWN
     Route: 048
     Dates: start: 20120215, end: 20120228
  25. MYSLEE [Concomitant]
     Indication: INSOMNIA
     Dosage: 5 MG, UNK
     Route: 048
     Dates: start: 20120216, end: 20120229
  26. GLYCERIN [Concomitant]
     Indication: CONSTIPATION
     Dosage: TRADE NAME: KENEI G, FORMULATION: ENM
     Route: 054
     Dates: start: 20120222, end: 20120228
  27. CALONAL [Concomitant]
     Dosage: 300 MG, UNK
     Route: 048
     Dates: start: 20120224, end: 20120308
  28. CALONAL [Concomitant]
     Dosage: 300 UNK, UNK
     Route: 048
     Dates: start: 20120329, end: 20120411
  29. CALONAL [Concomitant]
     Dosage: 300 MG , UNK
     Route: 048
     Dates: start: 20120405, end: 20120405
  30. DEXTROSE (+) POTASSIUM CHLORIDE (+) SODIUM CHLORIDE (+) SODIUM LACTATE [Concomitant]
     Dosage: ROUTE: IV UNSPECIFIED
     Route: 042
     Dates: start: 20120226, end: 20120227
  31. DEXTROSE (+) POTASSIUM CHLORIDE (+) SODIUM CHLORIDE (+) SODIUM LACTATE [Concomitant]
     Dosage: 500 MG, UNK
     Route: 042
     Dates: start: 20120227, end: 20120330
  32. DOGMATYL [Concomitant]
     Indication: PROPHYLAXIS
     Dosage: TOTAL DAILY DOSE: 150 MG UPDATE (31MAY2012)
     Route: 048
     Dates: start: 20120310, end: 20120328
  33. HYALEIN [Concomitant]
     Indication: PROPHYLAXIS
     Dosage: FORMULATION: EED, DAILY DOSE UNKNOWN
     Route: 031
     Dates: start: 20120314, end: 20120320
  34. ZADITEN [Concomitant]
     Indication: PROPHYLAXIS
     Dosage: FORMULATION: EED, DAILY DOSE UNKNOWN
     Route: 031
     Dates: start: 20120314, end: 20120320
  35. ADOFEED [Concomitant]
     Indication: PROPHYLAXIS
     Dosage: FORMULATION: TAP
     Route: 061
     Dates: start: 20120316, end: 20120325
  36. LOXONIN [Concomitant]
     Indication: PROPHYLAXIS
     Dosage: FORMULATION: TAP
     Route: 061
     Dates: start: 20120322, end: 20120328
  37. LENDORMIN [Concomitant]
     Indication: INSOMNIA
     Dosage: 0.25 MG, UNKNOWN
     Route: 048
     Dates: start: 20120323, end: 20120405
  38. ATARAX P [Concomitant]
     Dosage: 25 MG, UNKNOWN
     Route: 051
     Dates: start: 20120324, end: 20120324
  39. ATARAX P [Concomitant]
     Dosage: 25 MG, UNK
     Route: 051
     Dates: start: 20120424, end: 20120424
  40. KERATINAMIN [Concomitant]
     Indication: PRURITUS
     Dosage: UNK UNK, UNKNOWN
     Route: 065
     Dates: start: 20120221
  41. HIRUDOID [Concomitant]
     Indication: PRURITUS
     Dosage: UNK UNK, UNKNOWN
     Route: 065
     Dates: start: 20120221
  42. BICARBON (SODIUM BICARBONATE) [Concomitant]
     Dosage: 500 ML, QD
     Route: 042
     Dates: start: 20120221, end: 20120226
  43. ZYLORIC [Concomitant]
     Dosage: UPDATE (31MAY2012)
     Route: 048
     Dates: start: 20120225, end: 20120419
  44. REFLEX [Concomitant]
     Indication: DEPRESSION
     Dosage: UPDATE (31MAY2012)
     Route: 048
     Dates: start: 20120323, end: 20120328
  45. MEDICON (DEXTROMETHORPHAN HYDROBROMIDE) [Concomitant]
     Dosage: UPDATE (31MAY2012)
     Route: 048
     Dates: start: 20120417, end: 20120419
  46. URSO [Concomitant]
     Indication: CHRONIC HEPATITIS C
     Dosage: UPDATE (31MAY2012)
     Route: 048
     Dates: start: 20120425, end: 20120517
  47. URSO [Concomitant]
     Dosage: 200 MG, UNK
     Route: 048
     Dates: start: 20120209, end: 20120209
  48. HEPARINOID [Concomitant]
     Dosage: UPDATE (31MAY2012) DAILY DOSE UNKNOWN
     Route: 061
     Dates: start: 20120413, end: 20120419
  49. FUSIDATE SODIUM [Concomitant]
     Dosage: UPDATE (31MAY2012) DAILY DOSE UNKNOWN
     Route: 061
     Dates: start: 20120413, end: 20120419
  50. DIOVAN [Concomitant]
     Indication: HYPERTENSION
     Dosage: UPDATE (31MAY2012) FORMULATION POR
     Route: 048
     Dates: end: 20120419
  51. DIOVAN [Concomitant]
     Dosage: 80 MG, QD
     Route: 048
     Dates: start: 20120502, end: 20120517
  52. BIO-THREE [Concomitant]
     Dosage: 3 DF, TID
     Dates: start: 20120210, end: 20120211
  53. [COMPOSITION UNSPECIFIED] [Concomitant]
     Dosage: IV  UNSPECIFIED

REACTIONS (4)
  - Renal disorder [Recovered/Resolved]
  - Hyperuricaemia [Recovered/Resolved]
  - Anaemia [Recovered/Resolved]
  - Depression [Recovering/Resolving]
